FAERS Safety Report 17168197 (Version 1)
Quarter: 2019Q4

REPORT INFORMATION
  Report Type: Spontaneous
  Country: US (occurrence: US)
  Receive Date: 20191125
  Receipt Date: 20191125
  Transmission Date: 20200122
  Serious: Yes (Hospitalization)
  Sender: FDA-Public Use
  Company Number: None

PATIENT
  Sex: Male

DRUGS (8)
  1. NO DRUG NAME [Concomitant]
  2. LEVOTHYROX [Concomitant]
     Active Substance: LEVOTHYROXINE
  3. LANTUS [Concomitant]
     Active Substance: INSULIN GLARGINE
  4. ALLOPURINOL. [Suspect]
     Active Substance: ALLOPURINOL
     Route: 048
     Dates: start: 20190713
  5. CREON [Concomitant]
     Active Substance: PANCRELIPASE AMYLASE\PANCRELIPASE LIPASE\PANCRELIPASE PROTEASE
  6. ATORVASTATIN [Concomitant]
     Active Substance: ATORVASTATIN
  7. ESCITALOPRAM [Concomitant]
     Active Substance: ESCITALOPRAM OXALATE
  8. ESBRIET [Suspect]
     Active Substance: PIRFENIDONE
     Indication: INTERSTITIAL LUNG DISEASE
     Route: 048
     Dates: start: 20190713

REACTIONS (2)
  - Hospitalisation [None]
  - Therapy cessation [None]
